FAERS Safety Report 6058017-X (Version None)
Quarter: 2009Q1

REPORT INFORMATION
  Report Type: 
  Country: None (occurrence: None)
  Receive Date: 20090127
  Receipt Date: 20090112
  Transmission Date: 20090719
  Serious: Yes (Hospitalization)
  Sender: FDA-Public Use
  Company Number: AE 2009-005

PATIENT
  Age: 54 Year
  Sex: Male

DRUGS (3)
  1. FAZACLO ODT [Suspect]
     Indication: SCHIZOAFFECTIVE DISORDER
     Dosage: 300 MG DAILY PO
     Route: 048
  2. EFFEXOR XR [Concomitant]
  3. REMERON [Concomitant]

REACTIONS (5)
  - ANAEMIA [None]
  - COLON CANCER [None]
  - HAEMORRHAGE [None]
  - PSYCHOTIC DISORDER [None]
  - WEIGHT DECREASED [None]
